FAERS Safety Report 13877676 (Version 1)
Quarter: 2017Q3

REPORT INFORMATION
  Report Type: Spontaneous
  Country: CA (occurrence: CA)
  Receive Date: 20170817
  Receipt Date: 20170817
  Transmission Date: 20171127
  Serious: Yes (Death)
  Sender: FDA-Public Use
  Company Number: CA-PFIZER INC-2017356198

PATIENT
  Age: 58 Year
  Sex: Female

DRUGS (6)
  1. FASLODEX [Suspect]
     Active Substance: FULVESTRANT
     Dosage: UNK UNK, MONTHLY
  2. NOVOPRANOL [Suspect]
     Active Substance: PROPRANOLOL HYDROCHLORIDE
     Dosage: 20 MG, 2X/DAY
  3. PAMIDRONATE DISODIUM. [Suspect]
     Active Substance: PAMIDRONATE DISODIUM
     Dosage: UNK UNK, EVERY 3 MONTHS
  4. VITAMIN D /00107901/ [Suspect]
     Active Substance: ERGOCALCIFEROL
     Dosage: UNK UNK, DAILY
  5. CALCIUM CARBONATE. [Suspect]
     Active Substance: CALCIUM CARBONATE
     Dosage: UNK UNK, DAILY
  6. PANTOPRAZOLE [Suspect]
     Active Substance: PANTOPRAZOLE
     Dosage: 40 MG, QHS (BEFORE SLEEP)

REACTIONS (1)
  - Death [Fatal]
